FAERS Safety Report 8504708 (Version 2)
Quarter: 2020Q2

REPORT INFORMATION
  Report Type: Spontaneous
  Country: DK (occurrence: DK)
  Receive Date: 20120411
  Receipt Date: 20200526
  Transmission Date: 20200714
  Serious: Yes (Death, Hospitalization, Other)
  Sender: FDA-Public Use
  Company Number: PHHY2012DK030341

PATIENT
  Age: 81 Year
  Sex: Male

DRUGS (7)
  1. METHYLPREDNISOLONE. [Suspect]
     Active Substance: METHYLPREDNISOLONE
     Indication: SCLERITIS
     Dosage: 1000 MG, DAILY
     Route: 042
  2. SULFAMETHOXAZOLE [Suspect]
     Active Substance: SULFAMETHOXAZOLE
     Indication: PNEUMOCYSTIS JIROVECII PNEUMONIA
     Dosage: DOSE REDUCTION
     Route: 065
  3. CASPOFUNGIN [Suspect]
     Active Substance: CASPOFUNGIN
     Indication: PNEUMOCYSTIS JIROVECII PNEUMONIA
     Dosage: UNK
     Route: 065
  4. PREDNISOLONE. [Suspect]
     Active Substance: PREDNISOLONE
     Dosage: 30 MG, DAILY
     Route: 048
  5. RITUXIMAB. [Suspect]
     Active Substance: RITUXIMAB
     Indication: SCLERITIS
     Dosage: 1000 MG WAS ADMINISTERED TWICE, 2 WEEKS APART
     Route: 050
  6. SULFAMETHOXAZOLE [Suspect]
     Active Substance: SULFAMETHOXAZOLE
     Dosage: 0.25, QD (TRIMETHOPRIM/SULFAMETHOXAZOLE: 160/800 MG FOUR TIMES)
     Route: 065
  7. PREDNISOLONE. [Suspect]
     Active Substance: PREDNISOLONE
     Indication: SCLERITIS
     Dosage: 100 MG, QD (TAPERING OF ORAL PREDNISOLONE OVER 3 WEEKS FROM 100 TO)
     Route: 048

REACTIONS (15)
  - Hypoxia [Fatal]
  - Neutrophilia [Fatal]
  - Pneumocystis jirovecii pneumonia [Fatal]
  - Coma [Fatal]
  - Lung infiltration [Fatal]
  - Treatment failure [Fatal]
  - Anuria [Fatal]
  - Respiratory failure [Fatal]
  - Cerebral circulatory failure [Fatal]
  - Pneumothorax [Fatal]
  - C-reactive protein increased [Fatal]
  - Myocardial infarction [Unknown]
  - Drug ineffective [Fatal]
  - Renal function test abnormal [Fatal]
  - Pyrexia [Fatal]
